FAERS Safety Report 5777685-0 (Version None)
Quarter: 2008Q2

REPORT INFORMATION
  Report Type: 
  Country: None (occurrence: None)
  Receive Date: 20080618
  Receipt Date: 20080606
  Transmission Date: 20081010
  Serious: Yes (Disabling)
  Sender: FDA-Public Use
  Company Number: GB-PFIZER INC-2008049094

PATIENT
  Age: 76 Year
  Sex: Male
  Weight: 65 kg

DRUGS (5)
  1. CHANTIX [Suspect]
     Indication: SMOKING CESSATION THERAPY
     Route: 048
     Dates: start: 20080501, end: 20080509
  2. CARBOCISTEINE [Concomitant]
     Route: 048
  3. COMBIVENT [Concomitant]
     Route: 055
  4. SYMBICORT [Concomitant]
     Route: 055
  5. TIOTROPIUM BROMIDE [Concomitant]
     Route: 055

REACTIONS (1)
  - CONFUSIONAL STATE [None]
